FAERS Safety Report 13785372 (Version 1)
Quarter: 2017Q3

REPORT INFORMATION
  Report Type: Spontaneous
  Country: US (occurrence: US)
  Receive Date: 20170724
  Receipt Date: 20170724
  Transmission Date: 20171127
  Serious: Yes (Death)
  Sender: FDA-Public Use
  Company Number: US-BEH-2017082260

PATIENT
  Age: 25 Year
  Sex: Male

DRUGS (1)
  1. HUMAN IMMUNOGLOBULIN IV (INN) [Suspect]
     Active Substance: HUMAN IMMUNOGLOBULIN G
     Indication: COMBINED IMMUNODEFICIENCY
     Route: 042

REACTIONS (8)
  - Sporotrichosis [Fatal]
  - Hypoxia [Fatal]
  - Immune reconstitution inflammatory syndrome [Fatal]
  - Acute respiratory failure [Fatal]
  - Lactic acidosis [Fatal]
  - Hypotension [Fatal]
  - Hypoglycaemia [Fatal]
  - Acidosis [Fatal]
